FAERS Safety Report 14305251 (Version 1)
Quarter: 2017Q4

REPORT INFORMATION
  Report Type: Spontaneous
  Country: JP (occurrence: JP)
  Receive Date: 20171219
  Receipt Date: 20171219
  Transmission Date: 20180321
  Serious: Yes (Hospitalization)
  Sender: FDA-Public Use
  Company Number: JP-OTSUKA-03100-JPN-06-0572

PATIENT
  Age: 57 Year
  Sex: Male
  Weight: 63 kg

DRUGS (9)
  1. TOLOPELON [Concomitant]
     Indication: SCHIZOPHRENIA
     Dosage: 3 MG, QD
     Route: 048
     Dates: start: 20061003, end: 20061017
  2. SERENACE [Concomitant]
     Active Substance: HALOPERIDOL
     Indication: SCHIZOPHRENIA
     Dosage: 3 G, QD
     Route: 048
     Dates: start: 20041005, end: 20061003
  3. AKINETON [Concomitant]
     Active Substance: BIPERIDEN HYDROCHLORIDE
     Indication: HYPERKINESIA
     Dosage: 2 MG, QD
     Route: 048
     Dates: start: 20061025, end: 20061101
  4. TOLOPELON [Concomitant]
     Dosage: 2 MG, TID
     Route: 048
     Dates: start: 20061102
  5. TOLOPELON [Concomitant]
     Indication: HYPERKINESIA
     Dosage: 3 MG, QD
     Route: 048
     Dates: start: 20061025, end: 20061101
  6. AKINETON [Concomitant]
     Active Substance: BIPERIDEN HYDROCHLORIDE
     Indication: PARKINSONISM
     Dosage: 2 MG, QD
     Route: 048
     Dates: start: 20061003, end: 20061017
  7. ABILIFY [Suspect]
     Active Substance: ARIPIPRAZOLE
     Indication: SCHIZOPHRENIA
     Dosage: 12 MG, QD
     Route: 048
     Dates: start: 20061003, end: 20061028
  8. AKINETON [Concomitant]
     Active Substance: BIPERIDEN HYDROCHLORIDE
     Dosage: 2 MG, TID
     Route: 048
     Dates: start: 20061102
  9. EURODIN [Concomitant]
     Indication: INSOMNIA
     Dosage: 2 MG, QD
     Route: 048
     Dates: start: 20061003

REACTIONS (2)
  - Hyperkinesia [Recovered/Resolved]
  - Insomnia [Recovered/Resolved]

NARRATIVE: CASE EVENT DATE: 20061025
